FAERS Safety Report 20279384 (Version 1)
Quarter: 2022Q1

REPORT INFORMATION
  Report Type: Spontaneous
  Country: JP (occurrence: JP)
  Receive Date: 20220103
  Receipt Date: 20220103
  Transmission Date: 20220423
  Serious: Yes (Other)
  Sender: FDA-Public Use
  Company Number: JP-TAKEDA-2021TJP086871

PATIENT
  Age: 7 Decade
  Sex: Female

DRUGS (2)
  1. ZEJULA [Suspect]
     Active Substance: NIRAPARIB
     Indication: Ovarian cancer recurrent
     Dosage: 200 MILLIGRAM
     Route: 048
     Dates: start: 20210701
  2. ZEJULA [Suspect]
     Active Substance: NIRAPARIB
     Dosage: 200 MILLIGRAM
     Route: 048
     Dates: end: 20211101

REACTIONS (3)
  - Ovarian cancer recurrent [Unknown]
  - Disease progression [Unknown]
  - Platelet count decreased [Recovered/Resolved]
